FAERS Safety Report 17018119 (Version 1)
Quarter: 2019Q4

REPORT INFORMATION
  Report Type: Spontaneous
  Country: US (occurrence: US)
  Receive Date: 20191111
  Receipt Date: 20191111
  Transmission Date: 20200122
  Serious: No
  Sender: FDA-Public Use
  Company Number: US-LUNDBECK-DKLU3006726

PATIENT
  Age: 8 Month
  Sex: Female

DRUGS (8)
  1. SABRIL [Suspect]
     Active Substance: VIGABATRIN
     Route: 048
  2. SABRIL [Suspect]
     Active Substance: VIGABATRIN
     Route: 048
  3. H.P. ACTHAR [Concomitant]
     Active Substance: CORTICOTROPIN
     Dosage: DAYS 15-17
     Route: 065
  4. SABRIL [Suspect]
     Active Substance: VIGABATRIN
     Indication: INFANTILE SPASMS
     Route: 048
     Dates: start: 20191025
  5. H.P. ACTHAR [Concomitant]
     Active Substance: CORTICOTROPIN
     Dosage: DAYS 24-29 FOR TOTAL 3 DOSES
     Route: 065
  6. H.P. ACTHAR [Concomitant]
     Active Substance: CORTICOTROPIN
     Dosage: DAYS 21-23
     Route: 065
  7. H.P. ACTHAR [Concomitant]
     Active Substance: CORTICOTROPIN
     Indication: PRODUCT USED FOR UNKNOWN INDICATION
     Dosage: DAYS 1-14
     Route: 065
  8. H.P. ACTHAR [Concomitant]
     Active Substance: CORTICOTROPIN
     Dosage: DAYS 18-20
     Route: 065

REACTIONS (3)
  - Cushingoid [Unknown]
  - Weight increased [Unknown]
  - Rosacea [Unknown]

NARRATIVE: CASE EVENT DATE: 201910
